FAERS Safety Report 8617174-9 (Version None)
Quarter: 2012Q3

REPORT INFORMATION
  Report Type: 
  Country: None (occurrence: None)
  Receive Date: 20120823
  Receipt Date: 20120820
  Transmission Date: 20120928
  Serious: Yes (Death)
  Sender: FDA-Public Use
  Company Number: PHHY2012CA071742

PATIENT
  Age: 2 Year
  Sex: Male
  Weight: 13 kg

DRUGS (4)
  1. MEPERIDINE HCL [Concomitant]
     Dosage: 10 MG, UNK
  2. ACETAMINOPHEN [Concomitant]
     Dosage: 120 MG, PRN
     Route: 048
  3. CODEINE PHOSPHATE [Suspect]
  4. DIMENHYDRINATE [Concomitant]
     Dosage: 12.5 MG, UNK
     Route: 030

REACTIONS (6)
  - TRACHEITIS [None]
  - BRONCHOPNEUMONIA [None]
  - DRUG LEVEL ABOVE THERAPEUTIC [None]
  - RESPIRATORY DEPRESSION [None]
  - PYREXIA [None]
  - WHEEZING [None]
